FAERS Safety Report 15523232 (Version 1)
Quarter: 2018Q4

REPORT INFORMATION
  Report Type: Spontaneous
  Country: US (occurrence: US)
  Receive Date: 20181018
  Receipt Date: 20181018
  Transmission Date: 20190205
  Serious: Yes (Other)
  Sender: FDA-Public Use
  Company Number: US-PIRAMAL ENTERPRISES LIMITED-2018-PEL-003528

PATIENT
  Age: 55 Year
  Sex: Male

DRUGS (4)
  1. BUPIVACAINE W/EPINEPHRINE [Suspect]
     Active Substance: BUPIVACAINE\EPINEPHRINE
     Indication: NEUROMUSCULAR BLOCKADE
     Dosage: 30 MILLILITER, SINGLE
     Route: 065
  2. BUPIVACAINE. [Suspect]
     Active Substance: BUPIVACAINE
     Indication: NEUROMUSCULAR BLOCKADE
     Dosage: 15 MILLILITER, SINGLE (0.25%)
     Route: 065
  3. NITROUS OXIDE. [Suspect]
     Active Substance: NITROUS OXIDE
     Indication: GENERAL ANAESTHESIA
     Dosage: UNK
     Route: 065
  4. ISOFLURANE, USP (HUMAN) [Suspect]
     Active Substance: ISOFLURANE
     Indication: GENERAL ANAESTHESIA
     Dosage: UNK
     Route: 065

REACTIONS (4)
  - Unresponsive to stimuli [Recovered/Resolved]
  - Status epilepticus [Recovered/Resolved]
  - Horner^s syndrome [Recovered/Resolved]
  - Delayed recovery from anaesthesia [Recovered/Resolved]
